FAERS Safety Report 8398008-7 (Version None)
Quarter: 2012Q2

REPORT INFORMATION
  Report Type: 
  Country: None (occurrence: None)
  Receive Date: 20120531
  Receipt Date: 20110415
  Transmission Date: 20120825
  Serious: No
  Sender: FDA-Public Use
  Company Number: US-NOVEN-11US002283

PATIENT
  Sex: Female
  Weight: 27.211 kg

DRUGS (3)
  1. DAYTRANA [Suspect]
     Indication: ATTENTION DEFICIT/HYPERACTIVITY DISORDER
     Dosage: 20 MG, 1X/DAY ON SCHOOL DAYS:QD
     Route: 062
  2. DAYTRANA [Suspect]
     Dosage: 20 MG, UNK
     Dates: start: 20100901
  3. NONE [Concomitant]

REACTIONS (3)
  - DRUG ADMINISTRATION ERROR [None]
  - PRODUCT QUALITY ISSUE [None]
  - NO ADVERSE EVENT [None]
